FAERS Safety Report 20966684 (Version 7)
Quarter: 2022Q3

REPORT INFORMATION
  Report Type: Spontaneous
  Country: NL (occurrence: NL)
  Receive Date: 20220616
  Receipt Date: 20220927
  Transmission Date: 20221027
  Serious: Yes (Hospitalization, Disabling, Other)
  Sender: FDA-Public Use
  Company Number: None

PATIENT

DRUGS (4)
  1. TOBRAMYCIN [Suspect]
     Active Substance: TOBRAMYCIN
     Indication: Product used for unknown indication
     Dosage: UNK
  2. ALGLUCOSIDASE ALFA [Suspect]
     Active Substance: ALGLUCOSIDASE ALFA
     Indication: Glycogen storage disease type II
     Dosage: UNK
     Route: 042
     Dates: start: 20070330
  3. MEROPENEM [Suspect]
     Active Substance: MEROPENEM
     Indication: Product used for unknown indication
     Dosage: UNK
  4. MYOZYME [Concomitant]
     Active Substance: ALGLUCOSIDASE ALFA
     Indication: Product used for unknown indication
     Dosage: UNK

REACTIONS (18)
  - Respiratory tract infection [Recovered/Resolved]
  - Respiratory tract infection bacterial [Recovering/Resolving]
  - Respiratory tract infection viral [Recovering/Resolving]
  - Pneumonia [Recovering/Resolving]
  - Condition aggravated [Recovering/Resolving]
  - Secretion discharge [Recovering/Resolving]
  - Dependence on respirator [Recovering/Resolving]
  - Pyrexia [Recovering/Resolving]
  - Bedridden [Recovering/Resolving]
  - Oropharyngeal pain [Recovering/Resolving]
  - Oxygen saturation decreased [Recovering/Resolving]
  - Erythema [Recovering/Resolving]
  - Upper respiratory tract inflammation [Recovering/Resolving]
  - Pharyngeal erythema [Recovering/Resolving]
  - Sense of oppression [Recovering/Resolving]
  - Disease progression [Unknown]
  - Dyspnoea [Recovering/Resolving]
  - Pyrexia [Recovering/Resolving]

NARRATIVE: CASE EVENT DATE: 20210916
